FAERS Safety Report 13353461 (Version 1)
Quarter: 2017Q1

REPORT INFORMATION
  Report Type: Spontaneous
  Country: CA (occurrence: CA)
  Receive Date: 20170321
  Receipt Date: 20170321
  Transmission Date: 20170429
  Serious: Yes (Other)
  Sender: FDA-Public Use
  Company Number: CA-TEVA-751364ACC

PATIENT
  Age: 28 Year
  Sex: Female

DRUGS (3)
  1. APRI 28 [Suspect]
     Active Substance: DESOGESTREL\ETHINYL ESTRADIOL
     Indication: ORAL CONTRACEPTION
     Route: 065
  2. PROGESTERONE. [Concomitant]
     Active Substance: PROGESTERONE
  3. GABAPENTIN. [Concomitant]
     Active Substance: GABAPENTIN

REACTIONS (6)
  - Neck pain [Unknown]
  - Hypoaesthesia [Unknown]
  - Pain [Unknown]
  - Contusion [Unknown]
  - Pain in extremity [Unknown]
  - Muscular weakness [Unknown]
